FAERS Safety Report 9356854 (Version 2)
Quarter: 2013Q3

REPORT INFORMATION
  Report Type: Report from Study
  Country: BR (occurrence: BR)
  Receive Date: 20130620
  Receipt Date: 20130717
  Transmission Date: 20140515
  Serious: Yes (Hospitalization)
  Sender: FDA-Public Use
  Company Number: BR-ROCHE-1238270

PATIENT
  Sex: Female
  Weight: 55 kg

DRUGS (7)
  1. MABTHERA [Suspect]
     Indication: NEUROPATHY PERIPHERAL
     Route: 065
     Dates: start: 201112
  2. MABTHERA [Suspect]
     Indication: RAYNAUD^S PHENOMENON
  3. MABTHERA [Suspect]
     Indication: OFF LABEL USE
  4. CITALOPRAM [Concomitant]
  5. LOSARTAN [Concomitant]
  6. CILOSTAZOL [Concomitant]
  7. ALPRAZOLAM [Concomitant]

REACTIONS (1)
  - Inflammation [Unknown]
